FAERS Safety Report 23830364 (Version 3)
Quarter: 2024Q3

REPORT INFORMATION
  Report Type: Spontaneous
  Country: US (occurrence: US)
  Receive Date: 20240508
  Receipt Date: 20240717
  Transmission Date: 20241016
  Serious: No
  Sender: BRISTOL MYERS SQUIBB
  Company Number: US-BRISTOL-MYERS SQUIBB COMPANY-2024-071294

PATIENT
  Age: 66 Year
  Sex: Female

DRUGS (3)
  1. REVLIMID [Suspect]
     Active Substance: LENALIDOMIDE
     Indication: Plasma cell myeloma
     Route: 048
     Dates: start: 20240422
  2. REVLIMID [Suspect]
     Active Substance: LENALIDOMIDE
     Indication: Follicular lymphoma
     Dosage: ONE DAILY FOR 21 DAYS, FOLLOWED BY 7-DAY BREAK
     Route: 048
     Dates: start: 20240422
  3. REVLIMID [Suspect]
     Active Substance: LENALIDOMIDE
     Dosage: FREQ: 21
     Route: 048
     Dates: start: 20240422

REACTIONS (4)
  - Fatigue [Unknown]
  - Emotional disorder [Unknown]
  - Feeling abnormal [Unknown]
  - Vision blurred [Unknown]
